FAERS Safety Report 13865953 (Version 1)
Quarter: 2017Q3

REPORT INFORMATION
  Report Type: Spontaneous
  Country: US (occurrence: US)
  Receive Date: 20170814
  Receipt Date: 20170814
  Transmission Date: 20171127
  Serious: No
  Sender: FDA-Public Use
  Company Number: US-MALLINCKRODT-T201605839

PATIENT
  Age: 37 Year
  Sex: Male
  Weight: 100 kg

DRUGS (1)
  1. MORPHINE SULFATE. [Suspect]
     Active Substance: MORPHINE SULFATE
     Indication: PRODUCT USED FOR UNKNOWN INDICATION
     Dosage: 15 ML, OVER 2-3 DAY PERIOD
     Route: 042
     Dates: start: 20161105, end: 201611

REACTIONS (3)
  - Drug diversion [Unknown]
  - Incorrect route of drug administration [Recovered/Resolved]
  - Peripheral swelling [Not Recovered/Not Resolved]

NARRATIVE: CASE EVENT DATE: 20161105
